FAERS Safety Report 7038862-4 (Version None)
Quarter: 2010Q4

REPORT INFORMATION
  Report Type: 
  Country: None (occurrence: None)
  Receive Date: 20101012
  Receipt Date: 20101001
  Transmission Date: 20110411
  Serious: Yes (Other)
  Sender: FDA-Public Use
  Company Number: US-CELGENEUS-163-50794-10100185

PATIENT

DRUGS (5)
  1. VIDAZA [Suspect]
     Route: 051
  2. VIDAZA [Suspect]
     Route: 051
  3. VIDAZA [Suspect]
     Route: 051
  4. VIDAZA [Suspect]
     Indication: NON-HODGKIN'S LYMPHOMA
     Route: 051
  5. VIDAZA [Suspect]
     Route: 051

REACTIONS (7)
  - ANAEMIA [None]
  - FEBRILE NEUTROPENIA [None]
  - HYPONATRAEMIA [None]
  - INFECTION [None]
  - LEUKOPENIA [None]
  - NEUTROPENIA [None]
  - THROMBOCYTOPENIA [None]
